FAERS Safety Report 25958282 (Version 1)
Quarter: 2025Q4

REPORT INFORMATION
  Report Type: Spontaneous
  Country: CN (occurrence: CN)
  Receive Date: 20251024
  Receipt Date: 20251024
  Transmission Date: 20260117
  Serious: Yes (Other)
  Sender: The J.Molner Company
  Company Number: CN-THE J. MOLNER COMPANY-202510000057

PATIENT
  Age: 5 Year
  Sex: Male

DRUGS (8)
  1. HYDROCORTISONE BUTYRATE [Suspect]
     Active Substance: HYDROCORTISONE BUTYRATE
     Indication: Cerebral salt-wasting syndrome
     Dosage: 100 MILLIGRAM, TID
     Route: 065
  2. HYDROCORTISONE BUTYRATE [Suspect]
     Active Substance: HYDROCORTISONE BUTYRATE
     Dosage: 100 MILLIGRAM, BID
     Route: 065
  3. HYDROCORTISONE BUTYRATE [Suspect]
     Active Substance: HYDROCORTISONE BUTYRATE
     Dosage: 100 MILLIGRAM, QD
     Route: 065
  4. FLUDROCORTISONE [Suspect]
     Active Substance: FLUDROCORTISONE
     Indication: Cerebral salt-wasting syndrome
     Dosage: 0.05 MILLIGRAM, BID
     Route: 065
  5. FLUDROCORTISONE [Suspect]
     Active Substance: FLUDROCORTISONE
     Dosage: 0.075 MILLIGRAM, BID
     Route: 065
  6. FLUDROCORTISONE [Suspect]
     Active Substance: FLUDROCORTISONE
     Dosage: 0.025 MILLIGRAM, BID
     Route: 065
  7. SODIUM [Concomitant]
     Active Substance: SODIUM
     Indication: Mineral supplementation
     Dosage: UNK
     Route: 065
  8. Pituitary hormone, posterior lobe [Concomitant]
     Indication: Polyuria
     Route: 065

REACTIONS (1)
  - Hypokalaemia [Unknown]
